FAERS Safety Report 14964878 (Version 2)
Quarter: 2018Q3

REPORT INFORMATION
  Report Type: Spontaneous
  Country: CN (occurrence: CN)
  Receive Date: 20180601
  Receipt Date: 20180713
  Transmission Date: 20181010
  Serious: Yes (Hospitalization, Other)
  Sender: FDA-Public Use
  Company Number: PHHY2018CN009700

PATIENT
  Age: 53 Year
  Sex: Male
  Weight: 65 kg

DRUGS (2)
  1. GLIVEC [Suspect]
     Active Substance: IMATINIB MESYLATE
     Dosage: 400 MG, QD
     Route: 048
     Dates: start: 20170922
  2. GLIVEC [Suspect]
     Active Substance: IMATINIB MESYLATE
     Indication: PRODUCT USED FOR UNKNOWN INDICATION
     Dosage: UNK
     Route: 003
     Dates: start: 20170921

REACTIONS (29)
  - Dyspnoea [Unknown]
  - Rash [Unknown]
  - Lung infection [Unknown]
  - Pulmonary mass [Unknown]
  - Asthma [Unknown]
  - Lung neoplasm malignant [Unknown]
  - Second primary malignancy [Unknown]
  - Rash generalised [Unknown]
  - Productive cough [Unknown]
  - Haemorrhoids [Unknown]
  - Oedema [Unknown]
  - Alveolitis [Unknown]
  - Electrocardiogram PR prolongation [Unknown]
  - Hyperplasia [Unknown]
  - Decreased appetite [Unknown]
  - Angiocentric lymphoma [Recovering/Resolving]
  - Chest discomfort [Unknown]
  - Breath sounds abnormal [Unknown]
  - Sinus rhythm [Unknown]
  - Necrosis [Unknown]
  - Pulmonary granuloma [Recovering/Resolving]
  - Cough [Unknown]
  - Sputum purulent [Unknown]
  - Hypersensitivity [Unknown]
  - Dermatitis allergic [Unknown]
  - Sputum discoloured [Unknown]
  - Poor quality sleep [Unknown]
  - Depressed mood [Unknown]
  - Incorrect route of drug administration [Unknown]

NARRATIVE: CASE EVENT DATE: 201803
